FAERS Safety Report 13685149 (Version 1)
Quarter: 2017Q2

REPORT INFORMATION
  Report Type: Spontaneous
  Country: US (occurrence: US)
  Receive Date: 20170623
  Receipt Date: 20170623
  Transmission Date: 20170830
  Serious: No
  Sender: FDA-Public Use
  Company Number: US-FRESENIUS MEDICAL CARE RENAL THERAPIES GROUP-FMC-1706-000656

PATIENT
  Sex: Female

DRUGS (1)
  1. DELFLEX [Suspect]
     Active Substance: CALCIUM CHLORIDE\DEXTROSE\MAGNESIUM CHLORIDE\SODIUM CHLORIDE\SODIUM LACTATE
     Indication: END STAGE RENAL DISEASE
     Dosage: TREATMENT PRESCRIPTION INCLUDED FIVE TOTAL FILLS WITH FILL VOLUMES OF 2000ML AND A LAST FILL VOLUME
     Route: 033

REACTIONS (2)
  - Abdominal pain [Recovered/Resolved]
  - Dyspnoea [Recovered/Resolved]
